FAERS Safety Report 6286394-3 (Version None)
Quarter: 2009Q3

REPORT INFORMATION
  Report Type: 
  Country: None (occurrence: None)
  Receive Date: 20090727
  Receipt Date: 20090727
  Transmission Date: 20100115
  Serious: Yes (Other)
  Sender: FDA-Public Use
  Company Number: None

PATIENT
  Age: 9 Year
  Sex: Male
  Weight: 24.9478 kg

DRUGS (1)
  1. CLOTRIMAZOLE AND BETAMETHASONE DIPROPIONATE [Suspect]
     Indication: TINEA INFECTION
     Dosage: 3 TIMES A DAY 3 TIMES A DAY
     Dates: start: 20090708

REACTIONS (3)
  - BURNING SENSATION [None]
  - ERYTHEMA [None]
  - PRURITUS [None]
